FAERS Safety Report 5291965-7 (Version None)
Quarter: 2007Q2

REPORT INFORMATION
  Report Type: 
  Country: None (occurrence: None)
  Receive Date: 20070404
  Receipt Date: 20070326
  Transmission Date: 20071010
  Serious: Yes (Hospitalization)
  Sender: FDA-Public Use
  Company Number: 310001L07SWE

PATIENT
  Age: 22 Year
  Sex: Female

DRUGS (3)
  1. FOLLITROPIN ALPHA (FOLLITROPIN ALFA) [Suspect]
     Indication: IN VITRO FERTILISATION
  2. CHORIONIC GONADOTROPIN [Suspect]
     Indication: IN VITRO FERTILISATION
  3. ORGALUTRAN (GANIRELIX) [Concomitant]

REACTIONS (3)
  - HYDROTHORAX [None]
  - OVARIAN HYPERSTIMULATION SYNDROME [None]
  - PREGNANCY [None]
